FAERS Safety Report 24360990 (Version 2)
Quarter: 2025Q2

REPORT INFORMATION
  Report Type: Report from Study
  Country: ES (occurrence: ES)
  Receive Date: 20240925
  Receipt Date: 20250506
  Transmission Date: 20250716
  Serious: Yes (Death, Other)
  Sender: AUROBINDO
  Company Number: ES-AMGEN-ESPSP2019069735

PATIENT

DRUGS (1)
  1. CINACALCET [Suspect]
     Active Substance: CINACALCET
     Indication: Hyperparathyroidism secondary
     Route: 065

REACTIONS (10)
  - Adverse reaction [Fatal]
  - Asphyxia [Fatal]
  - Bone pain [Fatal]
  - Death [Fatal]
  - Hypocalcaemia [Fatal]
  - Hyperphosphataemia [Fatal]
  - Lichenoid keratosis [Fatal]
  - Drug interaction [Fatal]
  - Treatment noncompliance [Fatal]
  - Off label use [Fatal]
